FAERS Safety Report 8718498 (Version 2)
Quarter: 2012Q4

REPORT INFORMATION
  Report Type: 
  Country: US (occurrence: US)
  Receive Date: 20120810
  Receipt Date: 20121206
  Transmission Date: 20130627
  Serious: No
  Sender: FDA-Public Use
  Company Number: US-009507513-1208USA003085

PATIENT
  Age: 76 Year
  Sex: Male
  Weight: 79.37 kg

DRUGS (1)
  1. CLARITIN REDITABS 12HR [Suspect]
     Indication: NASOPHARYNGITIS
     Dosage: 5 mg, qd
     Route: 048
     Dates: start: 20120802, end: 20120803

REACTIONS (2)
  - Dyspnoea [Recovered/Resolved]
  - Condition aggravated [Recovered/Resolved]
